FAERS Safety Report 14103174 (Version 1)
Quarter: 2017Q4

REPORT INFORMATION
  Report Type: Spontaneous
  Country: US (occurrence: US)
  Receive Date: 20171018
  Receipt Date: 20171018
  Transmission Date: 20180321
  Serious: No
  Sender: FDA-Public Use
  Company Number: US-AMGEN-USASP2017066405

PATIENT
  Age: 68 Year
  Sex: Female

DRUGS (1)
  1. PROLIA [Suspect]
     Active Substance: DENOSUMAB
     Indication: OSTEOPOROSIS
     Dosage: UNK, Q6MO
     Route: 065
     Dates: start: 201512

REACTIONS (12)
  - Dysstasia [Unknown]
  - Back pain [Unknown]
  - Fall [Unknown]
  - Feeling abnormal [Unknown]
  - Soft tissue injury [Unknown]
  - Bone loss [Not Recovered/Not Resolved]
  - Syncope [Unknown]
  - Mobility decreased [Unknown]
  - Contusion [Unknown]
  - Eye injury [Unknown]
  - Gait disturbance [Unknown]
  - Impaired healing [Not Recovered/Not Resolved]

NARRATIVE: CASE EVENT DATE: 2015
